FAERS Safety Report 7501286-7 (Version None)
Quarter: 2011Q2

REPORT INFORMATION
  Report Type: 
  Country: None (occurrence: None)
  Receive Date: 20110524
  Receipt Date: 20110517
  Transmission Date: 20111010
  Serious: Yes (Death)
  Sender: FDA-Public Use
  Company Number: US-PURDUE-USA-2011-0068491

PATIENT
  Age: 65 Year
  Sex: Male

DRUGS (1)
  1. OXYCONTIN [Suspect]
     Indication: PAIN
     Dosage: 40 MG, SEE TEXT
     Dates: start: 20010101, end: 20091001

REACTIONS (2)
  - CARDIAC FAILURE CONGESTIVE [None]
  - MEDICATION RESIDUE [None]
